FAERS Safety Report 6030276-9 (Version None)
Quarter: 2009Q1

REPORT INFORMATION
  Report Type: 
  Country: None (occurrence: None)
  Receive Date: 20090107
  Receipt Date: 20090105
  Transmission Date: 20090719
  Serious: Yes (Death)
  Sender: FDA-Public Use
  Company Number: DE-SANOFI-SYNTHELABO-F04200800118

PATIENT
  Sex: Female

DRUGS (5)
  1. CREON [Concomitant]
     Indication: DRUG USE FOR UNKNOWN INDICATION
     Route: 048
  2. BISOPROLOL FUMARATE [Concomitant]
     Indication: DRUG USE FOR UNKNOWN INDICATION
     Route: 048
  3. TOREM [Concomitant]
     Indication: DRUG USE FOR UNKNOWN INDICATION
     Route: 048
  4. DOCETAXEL [Suspect]
     Indication: PANCREATIC CARCINOMA
     Route: 041
     Dates: start: 20081029, end: 20081029
  5. OXALIPLATIN [Suspect]
     Indication: PANCREATIC CARCINOMA
     Route: 041
     Dates: start: 20081030, end: 20081030

REACTIONS (1)
  - DEATH [None]
